FAERS Safety Report 6665187-9 (Version None)
Quarter: 2010Q2

REPORT INFORMATION
  Report Type: 
  Country: None (occurrence: None)
  Receive Date: 20100402
  Receipt Date: 20100329
  Transmission Date: 20101027
  Serious: Yes (Hospitalization)
  Sender: FDA-Public Use
  Company Number: PHHO2010GB04937

PATIENT
  Sex: Male

DRUGS (2)
  1. DICLOFENAC SODIUM [Suspect]
  2. CELECOXIB [Concomitant]

REACTIONS (2)
  - BLADDER DISORDER [None]
  - NEOPLASM [None]
